FAERS Safety Report 16541821 (Version 1)
Quarter: 2019Q3

REPORT INFORMATION
  Report Type: Spontaneous
  Country: IT (occurrence: IT)
  Receive Date: 20190708
  Receipt Date: 20190708
  Transmission Date: 20191004
  Serious: Yes (Other)
  Sender: FDA-Public Use
  Company Number: IT-SA-2019SA180385

PATIENT
  Age: 88 Year
  Sex: Female

DRUGS (6)
  1. OXALIPLATIN. [Suspect]
     Active Substance: OXALIPLATIN
     Dosage: 110 MG, QCY
     Route: 042
     Dates: start: 20190610, end: 20190610
  2. OXALIPLATIN. [Suspect]
     Active Substance: OXALIPLATIN
     Indication: GALLBLADDER CANCER
     Dosage: 110 MG, QCY
     Route: 042
     Dates: start: 20190506, end: 20190506
  3. FLUOROURACIL. [Suspect]
     Active Substance: FLUOROURACIL
     Dosage: 2600 MG, QCY
     Route: 042
     Dates: start: 20190610, end: 20190610
  4. DOXIFLURIDINE [Suspect]
     Active Substance: DOXIFLURIDINE
     Indication: GALLBLADDER CANCER
     Dosage: 450 MG, QCY
     Route: 040
     Dates: start: 20190506, end: 20190506
  5. FLUOROURACIL. [Suspect]
     Active Substance: FLUOROURACIL
     Indication: GALLBLADDER CANCER
     Dosage: 2600 MG, QCY
     Route: 042
     Dates: start: 20190506, end: 20190506
  6. DOXIFLURIDINE [Suspect]
     Active Substance: DOXIFLURIDINE
     Dosage: 450 MG, QCY
     Route: 040
     Dates: start: 20190610, end: 20190610

REACTIONS (3)
  - Abdominal distension [Not Recovered/Not Resolved]
  - General physical health deterioration [Not Recovered/Not Resolved]
  - Asthenia [Not Recovered/Not Resolved]

NARRATIVE: CASE EVENT DATE: 20190610
